FAERS Safety Report 20164537 (Version 2)
Quarter: 2022Q1

REPORT INFORMATION
  Report Type: Report from Study
  Country: US (occurrence: US)
  Receive Date: 20211209
  Receipt Date: 20220309
  Transmission Date: 20220423
  Serious: Yes (Other)
  Sender: FDA-Public Use
  Company Number: US-KOREA IPSEN Pharma-2021-30692

PATIENT
  Age: 51 Year
  Sex: Female

DRUGS (2)
  1. SOMATULINE DEPOT [Suspect]
     Active Substance: LANREOTIDE ACETATE
     Indication: Neuroendocrine tumour
     Dosage: 120 MG EVERY 4 WEEKS
     Route: 058
     Dates: start: 202007
  2. PRILOSEC [Suspect]
     Active Substance: OMEPRAZOLE MAGNESIUM
     Indication: Abdominal pain
     Route: 065

REACTIONS (9)
  - Myocardial infarction [Unknown]
  - Hepatic pain [Recovered/Resolved]
  - Hepatomegaly [Recovering/Resolving]
  - Heart rate increased [Unknown]
  - Fatigue [Unknown]
  - Abdominal pain upper [Unknown]
  - Hypertension [Unknown]
  - Somnolence [Unknown]
  - Anxiety [Unknown]
